FAERS Safety Report 9769070 (Version 1)
Quarter: 2013Q4

REPORT INFORMATION
  Report Type: Report from Study
  Country: CA (occurrence: CA)
  Receive Date: 20131218
  Receipt Date: 20131218
  Transmission Date: 20140711
  Serious: Yes (Other)
  Sender: FDA-Public Use
  Company Number: CA-JNJFOC-20131206998

PATIENT
  Sex: Male

DRUGS (3)
  1. REMICADE [Suspect]
     Indication: CROHN^S DISEASE
     Route: 042
     Dates: start: 20130318
  2. BENADRYL [Concomitant]
     Indication: PREMEDICATION
     Route: 065
  3. TYLENOL [Concomitant]
     Indication: PREMEDICATION
     Route: 065

REACTIONS (1)
  - Crohn^s disease [Not Recovered/Not Resolved]
